FAERS Safety Report 4568733-4 (Version None)
Quarter: 2005Q1

REPORT INFORMATION
  Report Type: 
  Country: None (occurrence: None)
  Receive Date: 20050202
  Receipt Date: 20041117
  Transmission Date: 20050727
  Serious: Yes (Other)
  Sender: FDA-Public Use
  Company Number: US-MERCK-0411USA02952

PATIENT
  Age: 61 Year
  Sex: Male

DRUGS (4)
  1. VIOXX [Suspect]
     Indication: ARTHRITIS
     Route: 048
     Dates: start: 20000815, end: 20000822
  2. VIOXX [Suspect]
     Route: 048
     Dates: start: 20000823, end: 20010401
  3. VIOXX [Suspect]
     Route: 048
     Dates: start: 20010402, end: 20010401
  4. VIOXX [Suspect]
     Route: 048
     Dates: start: 20010401, end: 20011227

REACTIONS (3)
  - ARTHRITIS [None]
  - CARDIOMEGALY [None]
  - DYSPNOEA [None]
